FAERS Safety Report 25574603 (Version 1)
Quarter: 2025Q3

REPORT INFORMATION
  Report Type: Spontaneous
  Country: CA (occurrence: CA)
  Receive Date: 20250718
  Receipt Date: 20250718
  Transmission Date: 20251020
  Serious: Yes (Hospitalization)
  Sender: ACCORD
  Company Number: None

PATIENT
  Age: 70 Year
  Sex: Female
  Weight: 76 kg

DRUGS (16)
  1. PACLITAXEL [Suspect]
     Active Substance: PACLITAXEL
     Indication: Breast cancer
     Route: 042
  2. BACLOFEN [Concomitant]
     Active Substance: BACLOFEN
  3. CARBOPLATIN [Concomitant]
     Active Substance: CARBOPLATIN
  4. DOCUSATE [Concomitant]
     Active Substance: DOCUSATE
  5. DULOXETINE [Concomitant]
     Active Substance: DULOXETINE
     Route: 048
  6. GABAPENTIN [Concomitant]
     Active Substance: GABAPENTIN
  7. PEMBROLIZUMAB [Concomitant]
     Active Substance: PEMBROLIZUMAB
  8. LANSOPRAZOLE [Concomitant]
     Active Substance: LANSOPRAZOLE
  9. LISTERINE ORIGINAL [Concomitant]
     Active Substance: EUCALYPTOL\MENTHOL\METHYL SALICYLATE\THYMOL
  10. LOPERAMIDE [Concomitant]
     Active Substance: LOPERAMIDE
  11. MAGNESIUM [Concomitant]
     Active Substance: MAGNESIUM
  12. MIRABEGRON [Concomitant]
     Active Substance: MIRABEGRON
  13. NABILONE [Concomitant]
     Active Substance: NABILONE
  14. NITROFURANTOIN [Concomitant]
     Active Substance: NITROFURANTOIN
  15. PROCHLORPERAZINE [Concomitant]
     Active Substance: PROCHLORPERAZINE
  16. QUETIAPINE [Concomitant]
     Active Substance: QUETIAPINE

REACTIONS (4)
  - Urosepsis [Recovering/Resolving]
  - Acute kidney injury [Recovering/Resolving]
  - Neutropenia [Recovering/Resolving]
  - Septic shock [Recovering/Resolving]
